FAERS Safety Report 9639265 (Version 3)
Quarter: 2013Q4

REPORT INFORMATION
  Report Type: Report from Study
  Country: CA (occurrence: CA)
  Receive Date: 20131022
  Receipt Date: 20131025
  Transmission Date: 20140711
  Serious: Yes (Other)
  Sender: FDA-Public Use
  Company Number: CA-ROCHE-1104791

PATIENT
  Age: 50 Year
  Sex: Male
  Weight: 57 kg

DRUGS (7)
  1. ACTEMRA [Suspect]
     Indication: RHEUMATOID ARTHRITIS
     Route: 042
     Dates: start: 20111122
  2. ACTEMRA [Suspect]
     Route: 042
     Dates: start: 20121112
  3. ACTEMRA [Suspect]
     Route: 042
     Dates: start: 20121212
  4. FOLIC ACID [Concomitant]
     Route: 048
  5. CELEBREX [Concomitant]
     Route: 048
  6. METHOTREXATE [Concomitant]
     Route: 058
  7. SULFASALAZINE [Concomitant]
     Dosage: DOSE: 2 CO
     Route: 048

REACTIONS (13)
  - Blood cholesterol increased [Unknown]
  - Drug ineffective [Unknown]
  - Skin papilloma [Not Recovered/Not Resolved]
  - Joint stiffness [Not Recovered/Not Resolved]
  - Weight increased [Recovered/Resolved]
  - Secretion discharge [Not Recovered/Not Resolved]
  - Back pain [Not Recovered/Not Resolved]
  - Musculoskeletal stiffness [Not Recovered/Not Resolved]
  - Arthralgia [Not Recovered/Not Resolved]
  - Arthralgia [Not Recovered/Not Resolved]
  - Arthralgia [Not Recovered/Not Resolved]
  - Musculoskeletal stiffness [Not Recovered/Not Resolved]
  - Influenza [Not Recovered/Not Resolved]
